FAERS Safety Report 13783963 (Version 1)
Quarter: 2017Q3

REPORT INFORMATION
  Report Type: Spontaneous
  Country: BR (occurrence: BR)
  Receive Date: 20170724
  Receipt Date: 20170724
  Transmission Date: 20171127
  Serious: Yes (Other)
  Sender: FDA-Public Use
  Company Number: PHHY2017BR105013

PATIENT
  Sex: Male

DRUGS (1)
  1. AZITHROMYCIN ANHYDROUS. [Suspect]
     Active Substance: AZITHROMYCIN ANHYDROUS
     Indication: PRODUCT USED FOR UNKNOWN INDICATION
     Dosage: 500 MG, QD
     Route: 065

REACTIONS (7)
  - Fatigue [Unknown]
  - Tinnitus [Unknown]
  - Faeces soft [Unknown]
  - Agitation [Unknown]
  - Arrhythmia [Unknown]
  - Malaise [Unknown]
  - Tachycardia [Unknown]
